FAERS Safety Report 7868188-8 (Version None)
Quarter: 2011Q4

REPORT INFORMATION
  Report Type: 
  Country: None (occurrence: None)
  Receive Date: 20111028
  Receipt Date: 20111019
  Transmission Date: 20120403
  Serious: Yes (Other)
  Sender: FDA-Public Use
  Company Number: PHHY2011GB92256

PATIENT
  Age: 57 Year
  Sex: Male

DRUGS (3)
  1. CISPLATIN [Suspect]
     Indication: TONSIL CANCER
     Dosage: UNK
     Dates: start: 20110401, end: 20110801
  2. ERBITUX [Suspect]
     Indication: TONSIL CANCER
     Dosage: UNK
     Dates: start: 20110401
  3. FLUOROURACIL [Suspect]
     Indication: TONSIL CANCER
     Dosage: UNK
     Dates: start: 20110401, end: 20110801

REACTIONS (4)
  - RENAL IMPAIRMENT [None]
  - NEUTROPENIA [None]
  - TINNITUS [None]
  - NEUROPATHY PERIPHERAL [None]
